FAERS Safety Report 7374409-0 (Version None)
Quarter: 2011Q1

REPORT INFORMATION
  Report Type: 
  Country: None (occurrence: None)
  Receive Date: 20110325
  Receipt Date: 20110322
  Transmission Date: 20110831
  Serious: Yes (Death, Other)
  Sender: FDA-Public Use
  Company Number: IE-PFIZER INC-2010176425

PATIENT
  Age: 75 Year
  Sex: Male
  Weight: 56 kg

DRUGS (6)
  1. LIPITOR [Suspect]
     Indication: CAROTID ENDARTERECTOMY
     Dosage: 80 MG, UNK
     Route: 048
     Dates: start: 20091201, end: 20100401
  2. EFFEXOR XR [Concomitant]
     Indication: DEPRESSION
     Dosage: 37.5 MG, 1X/DAY
     Route: 048
     Dates: start: 20100401
  3. PERSANTIN [Concomitant]
     Indication: CEREBROVASCULAR ACCIDENT
     Dosage: 1 DF, 2X/DAY
  4. ACETYLSALICYLIC ACID [Concomitant]
     Indication: CEREBROVASCULAR ACCIDENT
     Dosage: UNK
  5. LIPITOR [Suspect]
     Indication: HYPERLIPIDAEMIA
     Dosage: 20 MG DAILY DOSE
     Route: 048
     Dates: start: 20101027, end: 20101110
  6. MIRTAZAPINE [Concomitant]
     Dosage: UNK
     Dates: end: 20100401

REACTIONS (6)
  - VASCULITIC RASH [None]
  - HEPATITIS [None]
  - CEREBROVASCULAR ACCIDENT [None]
  - HEPATITIS ACUTE [None]
  - ACUTE MYELOID LEUKAEMIA [None]
  - LEUKOPENIA [None]
